FAERS Safety Report 10891611 (Version 6)
Quarter: 2015Q3

REPORT INFORMATION
  Report Type: Report from Study
  Country: US (occurrence: US)
  Receive Date: 20150306
  Receipt Date: 20150805
  Transmission Date: 20151125
  Serious: Yes (Hospitalization, Other)
  Sender: FDA-Public Use
  Company Number: US-GLAXOSMITHKLINE-US2015027944

PATIENT
  Age: 66 Year
  Sex: Male
  Weight: 104.1 kg

DRUGS (38)
  1. LISINOPRIL. [Concomitant]
     Active Substance: LISINOPRIL
     Indication: HYPERTENSION
     Dosage: 10 MG, OD
     Route: 048
     Dates: start: 2000
  2. ALBUTEROL. [Concomitant]
     Active Substance: ALBUTEROL
     Indication: BRONCHITIS
     Dosage: 3 ML, TID
     Route: 055
     Dates: start: 20140318
  3. LASIX [Concomitant]
     Active Substance: FUROSEMIDE
     Dosage: 20 MG, OD
     Route: 048
     Dates: start: 20150219
  4. NEUPOGEN [Concomitant]
     Active Substance: FILGRASTIM
     Dosage: 480 MCG, OD
     Route: 058
     Dates: start: 20150216, end: 20150219
  5. ALOXI [Concomitant]
     Active Substance: PALONOSETRON HYDROCHLORIDE
     Indication: PROPHYLAXIS OF NAUSEA AND VOMITING
     Dosage: 0.25 MG, QWK
     Route: 042
     Dates: start: 20150114
  6. LOVENOX [Concomitant]
     Active Substance: ENOXAPARIN SODIUM
     Indication: THROMBOSIS PROPHYLAXIS
     Dosage: 40 MG, OD
     Route: 058
     Dates: start: 20150214, end: 20150218
  7. ABRAXANE [Suspect]
     Active Substance: PACLITAXEL
     Indication: LUNG NEOPLASM MALIGNANT
     Dosage: 220 MG, QWK
     Route: 042
     Dates: start: 20150114, end: 20150220
  8. PRASUGREL [Concomitant]
     Active Substance: PRASUGREL
     Indication: CORONARY ARTERY DISEASE
     Dosage: 10 MG, OD
     Route: 048
     Dates: start: 20120624
  9. METOPROLOL [Concomitant]
     Active Substance: METOPROLOL
     Indication: CORONARY ARTERY DISEASE
     Dosage: 25 MG, OD
     Route: 048
     Dates: start: 20141125
  10. MAGNESIUM OXIDE. [Concomitant]
     Active Substance: MAGNESIUM OXIDE
     Indication: SUPPLEMENTATION THERAPY
     Dosage: 400 MG, BID
     Route: 048
     Dates: start: 20141226
  11. DEXTROSE AND SODIUM CHLORIDE [Concomitant]
     Active Substance: DEXTROSE MONOHYDRATE\SODIUM CHLORIDE
     Indication: DEHYDRATION
     Dosage: 1000 ML, ONE, 5-0.45%
     Route: 042
     Dates: start: 20150130, end: 20150130
  12. HEPARIN [Concomitant]
     Active Substance: HEPARIN SODIUM
     Indication: CATHETER MANAGEMENT
     Dosage: 500 U, QWK
     Route: 042
     Dates: start: 20141112, end: 20150211
  13. ALBUTEROL HFA [Concomitant]
     Active Substance: ALBUTEROL SULFATE
     Indication: CHRONIC OBSTRUCTIVE PULMONARY DISEASE
     Dosage: 2 INH, PRN
     Route: 055
     Dates: start: 201302
  14. VANCOMYCIN [Concomitant]
     Active Substance: VANCOMYCIN
     Indication: CELLULITIS
     Dosage: 1 G, Q12H
     Route: 042
     Dates: start: 20150214, end: 20150219
  15. ASPIRIN. [Concomitant]
     Active Substance: ASPIRIN
     Indication: CORONARY ARTERY DISEASE
     Dosage: 81 MG, OD
     Route: 048
     Dates: start: 20120624
  16. ACETAMINOPHEN. [Concomitant]
     Active Substance: ACETAMINOPHEN
     Indication: BRONCHITIS
     Dosage: 1000 MG, HS
     Route: 048
     Dates: start: 20140311
  17. PROCRIT [Concomitant]
     Active Substance: ERYTHROPOIETIN
     Indication: ANAEMIA
     Dosage: 40000 IU, QWK
     Route: 058
     Dates: start: 20141112
  18. LASIX [Concomitant]
     Active Substance: FUROSEMIDE
     Indication: POLYURIA
     Dosage: 40 MG, QOD
     Route: 048
     Dates: start: 20150107, end: 20150213
  19. OXYCODONE HYDROCHLORIDE. [Concomitant]
     Active Substance: OXYCODONE HYDROCHLORIDE
     Indication: PAIN IN EXTREMITY
     Dosage: 5 MG, Q4H
     Route: 048
     Dates: start: 20150215, end: 20150317
  20. NEUPOGEN [Concomitant]
     Active Substance: FILGRASTIM
     Indication: PANCYTOPENIA
     Dosage: 480 MCG, OD
     Route: 058
     Dates: start: 20150131, end: 20150201
  21. DECADRON [Concomitant]
     Active Substance: DEXAMETHASONE
     Indication: CHRONIC OBSTRUCTIVE PULMONARY DISEASE
     Dosage: 4 MG, Q6H
     Route: 042
     Dates: start: 20150219, end: 20150220
  22. FLUTICASONE FUROATE [Suspect]
     Active Substance: FLUTICASONE FUROATE
     Indication: CHRONIC OBSTRUCTIVE PULMONARY DISEASE
     Dosage: 100  ?G, 1D
     Route: 055
     Dates: start: 20130319, end: 20150220
  23. LASIX [Concomitant]
     Active Substance: FUROSEMIDE
     Dosage: 20 MG, OD
     Route: 048
     Dates: start: 20150219
  24. AMLODIPINE BESYLATE. [Concomitant]
     Active Substance: AMLODIPINE BESYLATE
     Indication: HYPERTENSION
     Dosage: 5 MG, OD
     Route: 048
     Dates: start: 2000
  25. NEUPOGEN [Concomitant]
     Active Substance: FILGRASTIM
     Indication: NEUTROPENIA
     Dosage: 480 MCG, PRN
     Route: 058
     Dates: start: 20141203
  26. ATORVASTATIN [Concomitant]
     Active Substance: ATORVASTATIN
     Indication: HYPERLIPIDAEMIA
     Dosage: 20 MG, HS
     Route: 048
     Dates: start: 2000
  27. MULTIVITAMIN [Concomitant]
     Active Substance: VITAMINS
     Indication: ROUTINE HEALTH MAINTENANCE
     Dosage: 1 TAB, OD
     Route: 048
     Dates: start: 2012
  28. ZOSYN [Concomitant]
     Active Substance: PIPERACILLIN SODIUM\TAZOBACTAM SODIUM
     Indication: CELLULITIS
     Dosage: 3.375 G, QID
     Route: 042
     Dates: start: 20150214, end: 20150219
  29. BACITRACIN. [Concomitant]
     Active Substance: BACITRACIN
     Indication: CELLULITIS
     Dosage: 1 APP, TID
     Route: 061
     Dates: start: 20150218, end: 20150317
  30. DEXAMETHASONE. [Concomitant]
     Active Substance: DEXAMETHASONE
     Indication: PROPHYLAXIS
     Dosage: 4 MG, Q3WK
     Route: 048
     Dates: start: 20140814
  31. RED BLOOD CELLS [Concomitant]
     Active Substance: HUMAN RED BLOOD CELL
     Indication: ANAEMIA
     Dosage: 2 U, ONE
     Route: 042
     Dates: start: 20150129, end: 20150130
  32. MUCINEX [Concomitant]
     Active Substance: GUAIFENESIN
     Indication: CHRONIC OBSTRUCTIVE PULMONARY DISEASE
     Dosage: 600 MG, OD
     Route: 048
     Dates: start: 20120624
  33. MUCINEX [Concomitant]
     Active Substance: GUAIFENESIN
     Dosage: 600 MG, BID
     Route: 048
     Dates: start: 201411
  34. ANCEF [Concomitant]
     Active Substance: CEFAZOLIN SODIUM
     Indication: CELLULITIS
     Dosage: 1 G, Q8H
     Route: 042
     Dates: start: 20150219, end: 20150220
  35. FOLIC ACID. [Concomitant]
     Active Substance: FOLIC ACID
     Indication: SUPPLEMENTATION THERAPY
     Dosage: 1 MG, OD
     Route: 048
     Dates: start: 20140723
  36. AMIODARONE [Concomitant]
     Active Substance: AMIODARONE
     Indication: TACHYCARDIA
     Dosage: 200 MG, BID
     Route: 048
     Dates: start: 20141222
  37. DECADRON [Concomitant]
     Active Substance: DEXAMETHASONE
     Indication: PROPHYLAXIS
     Dosage: 10 MG, QWK
     Route: 042
     Dates: start: 20141112
  38. KEFLEX [Concomitant]
     Active Substance: CEPHALEXIN
     Indication: CELLULITIS
     Dosage: 500 MG, QID
     Route: 048
     Dates: start: 20150208, end: 20150214

REACTIONS (5)
  - Cellulitis [Recovered/Resolved]
  - Toxicity to various agents [Recovered/Resolved]
  - Neutropenia [Recovered/Resolved]
  - Anaemia [Recovered/Resolved]
  - Chronic obstructive pulmonary disease [Recovered/Resolved]

NARRATIVE: CASE EVENT DATE: 20150208
